FAERS Safety Report 23794456 (Version 9)
Quarter: 2024Q4

REPORT INFORMATION
  Report Type: Report from Study
  Country: CA (occurrence: CA)
  Receive Date: 20240429
  Receipt Date: 20241211
  Transmission Date: 20250115
  Serious: Yes (Hospitalization)
  Sender: GLAXOSMITHKLINE
  Company Number: CA-GLAXOSMITHKLINE-CA2024051882

PATIENT

DRUGS (9)
  1. MEPOLIZUMAB [Suspect]
     Active Substance: MEPOLIZUMAB
     Indication: Asthma
     Dosage: 100 MG, Q4W
     Route: 058
     Dates: start: 20240418
  2. MEPOLIZUMAB [Suspect]
     Active Substance: MEPOLIZUMAB
     Indication: Asthma
     Dosage: 100 MG, Q4W
     Route: 058
  3. MEPOLIZUMAB [Suspect]
     Active Substance: MEPOLIZUMAB
     Indication: Asthma
     Dosage: 100 MG, Q4W
     Route: 058
  4. ASPIRIN [Concomitant]
     Active Substance: ASPIRIN
     Indication: Product used for unknown indication
     Dosage: UNK
  5. RIVOTRIL [Concomitant]
     Active Substance: CLONAZEPAM
     Indication: Product used for unknown indication
     Dosage: UNK, FROM 1972
  6. RIVOTRIL [Concomitant]
     Active Substance: CLONAZEPAM
     Dosage: 0.5 MG, QD
  7. TRELEGY ELLIPTA [Concomitant]
     Active Substance: FLUTICASONE FUROATE\UMECLIDINIUM BROMIDE\VILANTEROL TRIFENATATE
     Indication: Product used for unknown indication
     Dosage: UNK
  8. ARNUITY ELLIPTA [Concomitant]
     Active Substance: FLUTICASONE FUROATE
     Indication: Product used for unknown indication
     Dosage: UNK
  9. MONTELUKAST [Concomitant]
     Active Substance: MONTELUKAST
     Indication: Product used for unknown indication
     Dosage: UNK

REACTIONS (30)
  - Hospitalisation [Not Recovered/Not Resolved]
  - Gait disturbance [Unknown]
  - Back pain [Not Recovered/Not Resolved]
  - Headache [Not Recovered/Not Resolved]
  - Decreased immune responsiveness [Unknown]
  - Initial insomnia [Unknown]
  - Cough [Unknown]
  - Loss of personal independence in daily activities [Unknown]
  - Productive cough [Unknown]
  - Suffocation feeling [Unknown]
  - Salivary gland disorder [Unknown]
  - Dyspnoea [Unknown]
  - Blood pressure increased [Unknown]
  - Fatigue [Not Recovered/Not Resolved]
  - Dysphonia [Unknown]
  - Dyspnoea exertional [Unknown]
  - Feeling abnormal [Unknown]
  - Balance disorder [Unknown]
  - Mobility decreased [Unknown]
  - Thyroid disorder [Unknown]
  - Lymphadenopathy [Unknown]
  - Chromaturia [Unknown]
  - Urine analysis abnormal [Unknown]
  - Blood urine present [Unknown]
  - Renal pain [Unknown]
  - Bladder discomfort [Unknown]
  - Asthenia [Unknown]
  - Coronavirus test positive [Recovered/Resolved]
  - COVID-19 [Recovered/Resolved]
  - Inappropriate schedule of product administration [Unknown]

NARRATIVE: CASE EVENT DATE: 20241109
